FAERS Safety Report 8043409-X (Version None)
Quarter: 2012Q1

REPORT INFORMATION
  Report Type: 
  Country: None (occurrence: None)
  Receive Date: 20120112
  Receipt Date: 20120103
  Transmission Date: 20120608
  Serious: Yes (Other)
  Sender: FDA-Public Use
  Company Number: PHHY2012US002268

PATIENT
  Sex: Male

DRUGS (2)
  1. CUBICIN [Suspect]
  2. RIFAMPIN [Suspect]

REACTIONS (1)
  - DELIRIUM [None]
